FAERS Safety Report 8984327 (Version 5)
Quarter: 2013Q2

REPORT INFORMATION
  Report Type: Spontaneous
  Country: DE (occurrence: DE)
  Receive Date: 20121225
  Receipt Date: 20130509
  Transmission Date: 20140414
  Serious: Yes (Death, Hospitalization)
  Sender: FDA-Public Use
  Company Number: DE-BRISTOL-MYERS SQUIBB COMPANY-17212069

PATIENT
  Age: 68 Year
  Sex: Female
  Weight: 60 kg

DRUGS (11)
  1. YERVOY [Suspect]
     Indication: MALIGNANT MELANOMA
     Dosage: 05-DEC-2012.?DOSE: 180 MG
     Route: 042
     Dates: start: 20121106, end: 20121222
  2. PALLADON [Concomitant]
     Dosage: 1DF:16 MG MORNING?20 MG EVENING
  3. ACTIQ [Concomitant]
  4. L-THYROXINE [Concomitant]
  5. RANITIDINE [Concomitant]
     Dosage: 1DF:300 DOSE NOT GIVEN, 1 IN MORNING
  6. CALCIVIT [Concomitant]
     Dosage: 1DF: 600/400 CALCIUM CARBONATE, COLECALCIFEROL ACCORDING TO OWN SCHEME.
  7. PANTOZOL [Concomitant]
     Dosage: 1DF:400, 1 IN MORNING
  8. VERAPAMIL [Concomitant]
     Dosage: 1DF: 120 RETARD DOSE NOT GIVEN, 1 IN MORNING
  9. FRAXIPARINE [Concomitant]
     Dosage: 1 AT NIGHT
     Route: 058
  10. TAVOR [Concomitant]
  11. BROMAZANIL [Concomitant]
     Dosage: 1DF:1/4 AT MORNING, MIDDAY, EVENING.

REACTIONS (4)
  - Malignant neoplasm progression [Fatal]
  - Lymphoma [Fatal]
  - Ileus [Fatal]
  - Spinal fracture [Unknown]
